FAERS Safety Report 18430308 (Version 1)
Quarter: 2020Q4

REPORT INFORMATION
  Report Type: Spontaneous
  Country: US (occurrence: US)
  Receive Date: 20201026
  Receipt Date: 20201026
  Transmission Date: 20210114
  Serious: Yes (Hospitalization)
  Sender: FDA-Public Use
  Company Number: US-ROCHE-2699626

PATIENT
  Age: 75 Year
  Sex: Female

DRUGS (18)
  1. ALBUTEROL. [Concomitant]
     Active Substance: ALBUTEROL
  2. FLONASE ALLERGY RELIEF [Concomitant]
     Active Substance: FLUTICASONE PROPIONATE
  3. JANUVIA [Concomitant]
     Active Substance: SITAGLIPTIN PHOSPHATE
  4. PREDNISONE. [Concomitant]
     Active Substance: PREDNISONE
  5. LOSARTAN AND HYDROCHLOROTHIAZIDE [Concomitant]
     Active Substance: HYDROCHLOROTHIAZIDE\LOSARTAN POTASSIUM
  6. GABAPENTIN. [Concomitant]
     Active Substance: GABAPENTIN
  7. TYLENOL [Concomitant]
     Active Substance: ACETAMINOPHEN
  8. VOLTAREN [Concomitant]
     Active Substance: DICLOFENAC SODIUM
  9. HYDROCODONE [Concomitant]
     Active Substance: HYDROCODONE
  10. ATORVASTATIN [Concomitant]
     Active Substance: ATORVASTATIN
  11. ESBRIET [Suspect]
     Active Substance: PIRFENIDONE
     Indication: IDIOPATHIC PULMONARY FIBROSIS
     Dosage: THERAPY ONGOING: YES
     Route: 048
     Dates: start: 20190822
  12. IMIPRAMINE [Concomitant]
     Active Substance: IMIPRAMINE
  13. NOVOLOG [Concomitant]
     Active Substance: INSULIN ASPART
  14. PROAIR HFA [Concomitant]
     Active Substance: ALBUTEROL SULFATE
  15. BASAGLAR [Concomitant]
     Active Substance: INSULIN GLARGINE
  16. CETIRIZINE [Concomitant]
     Active Substance: CETIRIZINE HYDROCHLORIDE
  17. FLOVENT HFA [Concomitant]
     Active Substance: FLUTICASONE PROPIONATE
  18. OMEPRAZOLE. [Concomitant]
     Active Substance: OMEPRAZOLE

REACTIONS (1)
  - Oxygen saturation abnormal [Unknown]

NARRATIVE: CASE EVENT DATE: 20200923
